FAERS Safety Report 23640954 (Version 1)
Quarter: 2024Q1

REPORT INFORMATION
  Report Type: Spontaneous
  Country: AT (occurrence: AT)
  Receive Date: 20240318
  Receipt Date: 20240318
  Transmission Date: 20240410
  Serious: Yes (Other)
  Sender: FDA-Public Use
  Company Number: None

PATIENT
  Age: 42 Year
  Sex: Male
  Weight: 89 kg

DRUGS (45)
  1. NICODERM CQ [Suspect]
     Active Substance: NICOTINE
     Dosage: 1 DF,QD
  2. MORPHINE SULFATE [Suspect]
     Active Substance: MORPHINE SULFATE
     Indication: Sleep disorder
     Dosage: 480 MG,QD
     Dates: start: 2014
  3. TRAZODONE HYDROCHLORIDE [Suspect]
     Active Substance: TRAZODONE HYDROCHLORIDE
     Dosage: 450 MG,QD
     Dates: start: 2015, end: 20150316
  4. TRAZODONE HYDROCHLORIDE [Suspect]
     Active Substance: TRAZODONE HYDROCHLORIDE
     Dosage: 300 MG,QD
     Route: 065
     Dates: start: 20150317
  5. QUETIAPINE FUMARATE [Suspect]
     Active Substance: QUETIAPINE FUMARATE
     Indication: Sleep disorder
     Dosage: 100 MG,UNK
     Dates: end: 20150317
  6. QUETIAPINE FUMARATE [Suspect]
     Active Substance: QUETIAPINE FUMARATE
     Dosage: 200 MG
     Route: 065
     Dates: start: 20150318
  7. PANTOPRAZOLE [Suspect]
     Active Substance: PANTOPRAZOLE
     Indication: Sleep disorder
     Dosage: 40 MG,QD
     Dates: start: 2015
  8. PREGABALIN [Suspect]
     Active Substance: PREGABALIN
     Indication: Sleep disorder
     Dosage: 300 MG,QD
     Dates: end: 20150317
  9. PREGABALIN [Suspect]
     Active Substance: PREGABALIN
     Dosage: 375 MG,QD
     Route: 065
     Dates: start: 20150318, end: 20150318
  10. PREGABALIN [Suspect]
     Active Substance: PREGABALIN
     Dosage: 450 MG,QD
     Route: 065
     Dates: start: 20150319
  11. MIRTAZAPINE [Suspect]
     Active Substance: MIRTAZAPINE
     Dosage: UNK UNK,QD
     Dates: start: 2015, end: 2015
  12. MIRTAZAPINE [Suspect]
     Active Substance: MIRTAZAPINE
     Dosage: 7.5 MG,QD
     Route: 065
     Dates: start: 20150409, end: 20150416
  13. ZOLPIDEM TARTRATE [Suspect]
     Active Substance: ZOLPIDEM TARTRATE
     Indication: Sleep disorder
     Dosage: 10 MG,QD
     Dates: end: 20150322
  14. ZOLPIDEM TARTRATE [Suspect]
     Active Substance: ZOLPIDEM TARTRATE
     Dosage: 20 MG,QD
     Route: 065
     Dates: start: 20150323, end: 20150329
  15. VALPROIC ACID [Suspect]
     Active Substance: VALPROIC ACID
     Dosage: 750 MG,QD
     Route: 048
     Dates: start: 2015
  16. CHLORAL HYDRATE [Suspect]
     Active Substance: CHLORAL HYDRATE
     Indication: Sleep disorder
     Dosage: 100 MG,QD
     Dates: end: 20150320
  17. CHLORAL HYDRATE [Suspect]
     Active Substance: CHLORAL HYDRATE
     Dosage: 300 MG,QD
     Route: 065
     Dates: start: 20150321, end: 20150321
  18. CHLORAL HYDRATE [Suspect]
     Active Substance: CHLORAL HYDRATE
     Dosage: 200 MG,QD
     Route: 065
     Dates: start: 20150322, end: 20150322
  19. TRANYLCYPROMINE SULFATE [Suspect]
     Active Substance: TRANYLCYPROMINE SULFATE
     Dosage: 20 MG
     Dates: end: 20150413
  20. TRANYLCYPROMINE SULFATE [Suspect]
     Active Substance: TRANYLCYPROMINE SULFATE
     Dosage: 30 MG
     Dates: start: 20150414
  21. TRANYLCYPROMINE SULFATE [Suspect]
     Active Substance: TRANYLCYPROMINE SULFATE
     Dosage: 10 UNK
     Dates: start: 20150323, end: 20150406
  22. TRANYLCYPROMINE SULFATE [Suspect]
     Active Substance: TRANYLCYPROMINE SULFATE
     Indication: Sleep disorder
     Dosage: 10 MG, UNK
     Dates: end: 20150406
  23. TRANYLCYPROMINE SULFATE [Suspect]
     Active Substance: TRANYLCYPROMINE SULFATE
     Dosage: 20 MG,QD
     Route: 065
     Dates: start: 20150407, end: 20150413
  24. TRANYLCYPROMINE SULFATE [Suspect]
     Active Substance: TRANYLCYPROMINE SULFATE
     Dosage: 30 MG,QD
     Route: 065
     Dates: start: 20150414
  25. MOCLOBEMIDE [Suspect]
     Active Substance: MOCLOBEMIDE
     Dosage: 900 MG,QD
     Dates: start: 2015, end: 20150322
  26. FERROUS SULFATE [Suspect]
     Active Substance: FERROUS SULFATE
     Indication: Sleep disorder
     Dosage: 1 DF,QD
     Dates: start: 2015
  27. OXAZEPAM [Concomitant]
     Active Substance: OXAZEPAM
     Dosage: 125 MG,UNK
     Dates: start: 2015, end: 20150316
  28. ASPIRIN [Concomitant]
     Active Substance: ASPIRIN
     Dosage: 80 MG,UNK
     Dates: start: 20150319, end: 20150319
  29. ASPIRIN [Concomitant]
     Active Substance: ASPIRIN
     Dosage: 80 MG,UNK
     Route: 065
     Dates: start: 20150323, end: 20150323
  30. ASPIRIN [Concomitant]
     Active Substance: ASPIRIN
     Dosage: 80 MG,UNK
     Route: 065
     Dates: start: 20150331, end: 20150331
  31. ASPIRIN [Concomitant]
     Active Substance: ASPIRIN
     Dosage: 80 MG,UNK
     Route: 065
     Dates: start: 20150404, end: 20150404
  32. ASPIRIN [Concomitant]
     Active Substance: ASPIRIN
     Dosage: 160 MG,UNK
     Route: 065
     Dates: start: 20150408, end: 20150408
  33. ASPIRIN [Concomitant]
     Active Substance: ASPIRIN
     Dosage: 80 MG,UNK
     Route: 065
     Dates: start: 20150409, end: 20150410
  34. ASPIRIN [Concomitant]
     Active Substance: ASPIRIN
     Dosage: 80 MG,UNK
     Route: 065
     Dates: end: 20150413
  35. PROTHIPENDYL HYDROCHLORIDE [Concomitant]
     Active Substance: PROTHIPENDYL HYDROCHLORIDE
     Dosage: 80 MG, UNK
     Dates: start: 20150413, end: 20150413
  36. PROTHIPENDYL HYDROCHLORIDE [Concomitant]
     Active Substance: PROTHIPENDYL HYDROCHLORIDE
     Dosage: 80 MG, QD
     Dates: start: 20150323, end: 20150323
  37. PROTHIPENDYL HYDROCHLORIDE [Concomitant]
     Active Substance: PROTHIPENDYL HYDROCHLORIDE
     Dosage: 80 MG
     Dates: start: 20150319, end: 20150319
  38. PROTHIPENDYL HYDROCHLORIDE [Concomitant]
     Active Substance: PROTHIPENDYL HYDROCHLORIDE
     Dosage: 80 MG
     Dates: start: 20150409, end: 20150410
  39. PROTHIPENDYL HYDROCHLORIDE [Concomitant]
     Active Substance: PROTHIPENDYL HYDROCHLORIDE
     Dosage: 160 MG
     Dates: start: 20150408, end: 20150408
  40. PROTHIPENDYL HYDROCHLORIDE [Concomitant]
     Active Substance: PROTHIPENDYL HYDROCHLORIDE
     Dosage: 80 MG
     Dates: start: 20150331, end: 20150331
  41. PROTHIPENDYL HYDROCHLORIDE [Concomitant]
     Active Substance: PROTHIPENDYL HYDROCHLORIDE
     Dosage: 80 UNK
     Dates: start: 20150404, end: 20150404
  42. NICORETTE [Concomitant]
     Active Substance: NICOTINE
     Dosage: 1 DF, UNK, TRANSDERMALES PFLASTER 25 MG/16H
     Dates: start: 20150321
  43. PANTOPRAZOLE SODIUM [Concomitant]
     Active Substance: PANTOPRAZOLE SODIUM
     Dosage: UNK
     Dates: start: 2015
  44. MORPHINE SULFATE [Concomitant]
     Active Substance: MORPHINE SULFATE
     Dosage: 480 MG
     Dates: start: 2014
  45. FERROUS SULFATE [Concomitant]
     Active Substance: FERROUS SULFATE
     Dosage: UNK
     Dates: start: 2015

REACTIONS (7)
  - Pollakiuria [Unknown]
  - Disorientation [Unknown]
  - Depressed mood [Unknown]
  - Nervousness [Unknown]
  - Restlessness [Unknown]
  - Confusional state [Recovered/Resolved]
  - Oedema peripheral [Recovered/Resolved]

NARRATIVE: CASE EVENT DATE: 20150101
